FAERS Safety Report 14869439 (Version 1)
Quarter: 2018Q2

REPORT INFORMATION
  Report Type: Spontaneous
  Country: US (occurrence: US)
  Receive Date: 20180509
  Receipt Date: 20180509
  Transmission Date: 20180711
  Serious: No
  Sender: FDA-Public Use
  Company Number: US-SHIRE-US201817303

PATIENT
  Age: 9 Year
  Sex: Male

DRUGS (2)
  1. PENTASA [Suspect]
     Active Substance: MESALAMINE
     Indication: INFLAMMATORY BOWEL DISEASE
     Dosage: 1000 MG, 2X/DAY:BID
     Route: 048
     Dates: start: 201803, end: 20180313
  2. DELZICOL [Concomitant]
     Active Substance: MESALAMINE
     Indication: PRODUCT USED FOR UNKNOWN INDICATION

REACTIONS (4)
  - Abdominal pain [Recovered/Resolved]
  - Bowel movement irregularity [Recovered/Resolved]
  - Drug administered to patient of inappropriate age [Recovered/Resolved]
  - Flatulence [Recovered/Resolved]

NARRATIVE: CASE EVENT DATE: 201803
